FAERS Safety Report 7837884-0 (Version None)
Quarter: 2011Q4

REPORT INFORMATION
  Report Type: 
  Country: None (occurrence: None)
  Receive Date: 20111024
  Receipt Date: 20111013
  Transmission Date: 20120403
  Serious: Yes (Other)
  Sender: FDA-Public Use
  Company Number: US-ASTRAZENECA-2011SE61987

PATIENT
  Sex: Female

DRUGS (1)
  1. NEXIUM [Suspect]
     Route: 048

REACTIONS (6)
  - DRUG DOSE OMISSION [None]
  - SELF-INJURIOUS IDEATION [None]
  - DISTRACTIBILITY [None]
  - FEELING ABNORMAL [None]
  - INAPPROPRIATE AFFECT [None]
  - MALAISE [None]
